FAERS Safety Report 4981822-5 (Version None)
Quarter: 2006Q2

REPORT INFORMATION
  Report Type: 
  Country: None (occurrence: None)
  Receive Date: 20060420
  Receipt Date: 20060420
  Transmission Date: 20061013
  Serious: Yes (Other)
  Sender: FDA-Public Use
  Company Number: None

PATIENT
  Age: 46 Year
  Sex: Female

DRUGS (1)
  1. COLGATE SPARKLING WHITE MINT TOOTHPASTE [Suspect]
     Route: 004
     Dates: start: 20050602

REACTIONS (8)
  - LOSS OF CONSCIOUSNESS [None]
  - MOVEMENT DISORDER [None]
  - OEDEMA MOUTH [None]
  - ORAL DISCOMFORT [None]
  - ORAL MUCOSAL EXFOLIATION [None]
  - PANIC ATTACK [None]
  - PHARYNGEAL OEDEMA [None]
  - SPEECH DISORDER [None]
